FAERS Safety Report 4318931-X (Version None)
Quarter: 2004Q1

REPORT INFORMATION
  Report Type: 
  Country: None (occurrence: None)
  Receive Date: 20040315
  Receipt Date: 20030902
  Transmission Date: 20041129
  Serious: Yes (Hospitalization)
  Sender: FDA-Public Use
  Company Number: US-JNJFOC-20030900473

PATIENT
  Age: 57 Year
  Sex: Female
  Weight: 73.0291 kg

DRUGS (7)
  1. INFLIXIMAB (INFLIXIMAB, RECOMBINANT) LYOPHILIZED POWDER [Suspect]
     Indication: RHEUMATOID ARTHRITIS
     Dosage: INTRAVENOUS
     Route: 042
     Dates: start: 20010711, end: 20020701
  2. ARAVA [Concomitant]
  3. DARVOCET (PROPACET) [Concomitant]
  4. METHOTREXATE [Concomitant]
  5. FOLIC ACID [Concomitant]
  6. NAPROXEN [Concomitant]
  7. PLAQUENIL [Concomitant]

REACTIONS (3)
  - GRANULOMA [None]
  - LUNG NEOPLASM [None]
  - MYCOBACTERIUM AVIUM COMPLEX INFECTION [None]
